FAERS Safety Report 20413039 (Version 14)
Quarter: 2022Q4

REPORT INFORMATION
  Report Type: Report from Study
  Country: IL (occurrence: IL)
  Receive Date: 20220201
  Receipt Date: 20221208
  Transmission Date: 20230113
  Serious: Yes (Hospitalization, Other)
  Sender: FDA-Public Use
  Company Number: IL-ABBVIE-21K-082-4213224-00

PATIENT
  Age: 72 Year
  Sex: Male

DRUGS (15)
  1. CARBIDOPA\LEVODOPA [Suspect]
     Active Substance: CARBIDOPA\LEVODOPA
     Indication: Parkinson^s disease
     Dates: start: 20160924
  2. CARBIDOPA\LEVODOPA [Suspect]
     Active Substance: CARBIDOPA\LEVODOPA
     Dosage: MORNING 5.5 ML, CONTINUOUS DAY 3.0 ML/HOUR, EXTRA 2.3 ML THERAPY DURATION 16 H
     Route: 050
     Dates: start: 2022
  3. CARBIDOPA\LEVODOPA [Suspect]
     Active Substance: CARBIDOPA\LEVODOPA
     Dosage: MORNING 5.5 ML, CONTINUOUS DAY 3.0 ML/HOUR, EXTRA 2.3 ML THERAPY DURATION 16 H
  4. CARBIDOPA\LEVODOPA [Suspect]
     Active Substance: CARBIDOPA\LEVODOPA
     Route: 050
     Dates: start: 20160924
  5. CARBIDOPA\LEVODOPA [Suspect]
     Active Substance: CARBIDOPA\LEVODOPA
     Dosage: MORNING DOSAGE(ML)  6.0, CONTINUOUS DOSAGE (ML/H)  3.5, EXTRA DOSAGE (ML)  2.3
  6. CARBIDOPA\LEVODOPA [Suspect]
     Active Substance: CARBIDOPA\LEVODOPA
     Dosage: CURRENT: MORNING 5.0 ML, CONTINUOUS DAY 3.0 ML/HOUR, EXTRA 2.3 ML THERAPY DURATION 16 H
     Route: 050
  7. CARBIDOPA\LEVODOPA [Suspect]
     Active Substance: CARBIDOPA\LEVODOPA
     Dosage: CURRENT: MORNING 5.5 ML, CONTINUOUS DAY 3.0 ML/HOUR, EXTRA 2.3 ML THERAPY DURATION 16 H
     Route: 050
     Dates: end: 20220217
  8. CARBIDOPA\LEVODOPA [Suspect]
     Active Substance: CARBIDOPA\LEVODOPA
     Dosage: MD (ML) 6.0, CD (ML/H) 3.2 , EXTRA DOSAGE (ML) 2.3?20 MG/ML 5 MG/ML
     Route: 050
     Dates: start: 20220217, end: 2022
  9. CARBIDOPA\LEVODOPA [Suspect]
     Active Substance: CARBIDOPA\LEVODOPA
     Dosage: MORNING 5.0 ML, CONTINUOUS DAY 3.0 ML/HOUR, EXTRA 2.3 ML THERAPY DURATION 16 H
  10. Baby pasta [Concomitant]
     Indication: Product used for unknown indication
  11. BACTROBAN [Concomitant]
     Active Substance: MUPIROCIN\MUPIROCIN CALCIUM
     Indication: Stoma site erythema
  12. ENOXAPARIN SODIUM [Concomitant]
     Active Substance: ENOXAPARIN SODIUM
     Indication: Deep vein thrombosis
  13. Avilac [Concomitant]
     Indication: Product used for unknown indication
  14. CONTROLOC [Concomitant]
     Active Substance: PANTOPRAZOLE SODIUM
     Indication: Stoma site pain
     Dates: start: 20220116
  15. CONTROLOC [Concomitant]
     Active Substance: PANTOPRAZOLE SODIUM
     Indication: Stoma site pain
     Dates: end: 20220116

REACTIONS (28)
  - Cellulitis [Unknown]
  - Gastric infection [Unknown]
  - Stoma site pain [Unknown]
  - Cellulitis [Unknown]
  - Diarrhoea [Unknown]
  - Gastric perforation [Unknown]
  - Abdominal pain [Unknown]
  - Infection [Unknown]
  - On and off phenomenon [Not Recovered/Not Resolved]
  - Infrequent bowel movements [Unknown]
  - Abdominal pain [Unknown]
  - COVID-19 [Unknown]
  - Knee operation [Recovering/Resolving]
  - Medical device site infection [Unknown]
  - Device placement issue [Unknown]
  - Infection [Unknown]
  - Balance disorder [Unknown]
  - Pneumonia aspiration [Unknown]
  - Constipation [Unknown]
  - On and off phenomenon [Unknown]
  - Stoma site pain [Not Recovered/Not Resolved]
  - Stoma site erythema [Unknown]
  - Abdominal distension [Unknown]
  - Constipation [Unknown]
  - Therapeutic product effect incomplete [Unknown]
  - Unevaluable event [Unknown]
  - Therapeutic product effect incomplete [Unknown]
  - Defaecation disorder [Unknown]

NARRATIVE: CASE EVENT DATE: 20210801
